FAERS Safety Report 8457919-4 (Version None)
Quarter: 2012Q2

REPORT INFORMATION
  Report Type: 
  Country: None (occurrence: None)
  Receive Date: 20120622
  Receipt Date: 20120609
  Transmission Date: 20120825
  Serious: Yes (Other)
  Sender: FDA-Public Use
  Company Number: US-BAYER-2012-058597

PATIENT

DRUGS (1)
  1. MIDOL PM CAPLETS [Suspect]
     Indication: DYSMENORRHOEA
     Route: 048

REACTIONS (3)
  - HYPERSOMNIA [None]
  - SYNCOPE [None]
  - FEELING ABNORMAL [None]
